FAERS Safety Report 6444638-9 (Version None)
Quarter: 2009Q4

REPORT INFORMATION
  Report Type: 
  Country: None (occurrence: None)
  Receive Date: 20091118
  Receipt Date: 20090929
  Transmission Date: 20100525
  Serious: No
  Sender: FDA-Public Use
  Company Number: US-BAYER-200916398BCC

PATIENT
  Sex: Female

DRUGS (1)
  1. ALEVE-D SINUS + COLD [Suspect]
     Indication: DRUG USE FOR UNKNOWN INDICATION
     Dosage: TOTAL DAILY DOSE: 4 DF  UNIT DOSE: 1 DF
     Route: 048
     Dates: start: 20090929

REACTIONS (1)
  - ADVERSE EVENT [None]
